FAERS Safety Report 7403165-2 (Version None)
Quarter: 2011Q2

REPORT INFORMATION
  Report Type: 
  Country: None (occurrence: None)
  Receive Date: 20110408
  Receipt Date: 20110404
  Transmission Date: 20111010
  Serious: Yes (Other)
  Sender: FDA-Public Use
  Company Number: US-PFIZER INC-2011074743

PATIENT
  Sex: Male

DRUGS (1)
  1. LYRICA [Suspect]
     Indication: PERONEAL MUSCULAR ATROPHY
     Dosage: 150 MG, DAILY
     Route: 048
     Dates: start: 20110301, end: 20110404

REACTIONS (4)
  - GAIT DISTURBANCE [None]
  - PRESYNCOPE [None]
  - BLOOD PRESSURE ABNORMAL [None]
  - DIZZINESS [None]
